FAERS Safety Report 6607854-9 (Version None)
Quarter: 2010Q1

REPORT INFORMATION
  Report Type: 
  Country: None (occurrence: None)
  Receive Date: 20100301
  Receipt Date: 20100219
  Transmission Date: 20100710
  Serious: Yes (Hospitalization)
  Sender: FDA-Public Use
  Company Number: CH-ASTRAZENECA-2009SE14097

PATIENT
  Age: 27 Year
  Sex: Female

DRUGS (8)
  1. SEROQUEL [Suspect]
     Route: 048
     Dates: start: 20081101, end: 20090630
  2. SEROQUEL [Suspect]
     Route: 048
     Dates: start: 20090729, end: 20090826
  3. CIPRALEX [Interacting]
     Route: 048
     Dates: start: 20080429, end: 20080512
  4. CIPRALEX [Interacting]
     Route: 048
     Dates: start: 20080513
  5. LITHIUM [Concomitant]
     Dates: start: 20090729
  6. ARIPIPRAZOLE [Concomitant]
     Dates: start: 20090807
  7. PALIPERIDONE [Concomitant]
     Dates: start: 20090826
  8. OLANZAPINE [Concomitant]

REACTIONS (1)
  - METABOLIC SYNDROME [None]
